FAERS Safety Report 8200823-7 (Version None)
Quarter: 2012Q1

REPORT INFORMATION
  Report Type: 
  Country: None (occurrence: None)
  Receive Date: 20120312
  Receipt Date: 20120301
  Transmission Date: 20120608
  Serious: Yes (Other)
  Sender: FDA-Public Use
  Company Number: BR-PFIZER INC-2012062563

PATIENT
  Sex: Female
  Weight: 66 kg

DRUGS (6)
  1. ACETAMINOPHEN W/ CODEINE [Suspect]
     Indication: ANALGESIC THERAPY
     Route: 048
  2. IBUPROFEN [Suspect]
     Indication: PRODUCT USED FOR UNKNOWN INDICATION
     Route: 065
  3. BUSCOPAN PLUS [Suspect]
     Indication: ANALGESIC THERAPY
     Route: 065
  4. BUTYLSCOPOLAMIN [Suspect]
     Indication: ANALGESIC THERAPY
     Route: 065
  5. ACETAMINOPHEN [Suspect]
     Indication: ANALGESIC THERAPY
     Route: 065
  6. SUTENT [Concomitant]
     Indication: RENAL CANCER
     Route: 048
     Dates: start: 20120126

REACTIONS (8)
  - DYSPNOEA [None]
  - WEIGHT DECREASED [None]
  - CHILLS [None]
  - APHTHOUS STOMATITIS [None]
  - RENAL PAIN [None]
  - NAUSEA [None]
  - ASTHENIA [None]
  - CONVULSION [None]
